FAERS Safety Report 5283506-5 (Version None)
Quarter: 2007Q1

REPORT INFORMATION
  Report Type: 
  Country: None (occurrence: None)
  Receive Date: 20070329
  Receipt Date: 20070329
  Transmission Date: 20070707
  Serious: Yes (Hospitalization)
  Sender: FDA-Public Use
  Company Number: None

PATIENT
  Sex: Male
  Weight: 96.4 kg

DRUGS (9)
  1. DOXIL [Suspect]
     Indication: PROSTATE CANCER
     Dosage: DOXIL 86MG EVERY 28DAYS IV
     Route: 042
     Dates: start: 20070320
  2. THALIDOMIDE [Suspect]
     Indication: PROSTATE CANCER
     Dosage: THALIDOMIDE 100MG. DAILY PO
     Route: 048
     Dates: start: 20070320, end: 20070326
  3. PRILOSEC [Concomitant]
  4. DURAGESIC-100 [Concomitant]
  5. HYDROMMORPHONE [Concomitant]
  6. LUPRON [Concomitant]
  7. COLACE [Concomitant]
  8. SENNA [Concomitant]
  9. PROZAC [Concomitant]

REACTIONS (1)
  - METASTATIC PAIN [None]
